FAERS Safety Report 9082932 (Version 1)
Quarter: 2013Q1

REPORT INFORMATION
  Report Type: Report from Study
  Country: US (occurrence: US)
  Receive Date: 20130130
  Receipt Date: 20130130
  Transmission Date: 20140127
  Serious: No
  Sender: FDA-Public Use
  Company Number: US-ABBOTT-12P-163-0966707-00

PATIENT
  Age: 59 Year
  Sex: Female

DRUGS (12)
  1. HUMIRA 40 MG/0.8 ML PEN [Suspect]
     Indication: PSORIATIC ARTHROPATHY
     Dates: start: 20120806
  2. METFORMIN [Concomitant]
     Indication: DIABETES MELLITUS
  3. INDAPAMIDE [Concomitant]
     Indication: HYPERTENSION
     Dosage: 2.5MG DAILY
  4. ENALAPRIL [Concomitant]
     Indication: HYPERTENSION
     Dosage: 5MG DAILY
  5. POTASSIUM [Concomitant]
     Indication: BLOOD PRESSURE
     Dosage: 20MEQ DAILY
  6. PRILOSEC [Concomitant]
     Indication: GASTROOESOPHAGEAL REFLUX DISEASE
     Dosage: 20MG DAILY
  7. GEMFIBROZIL [Concomitant]
     Indication: LIPIDS INCREASED
  8. LYRICA [Concomitant]
     Indication: FIBROMYALGIA
     Dosage: 75MG DAILY
  9. AMITRIPTYLINE [Concomitant]
     Indication: DEPRESSION
     Dosage: 100MG DAILY
  10. WELLBUTRIN [Concomitant]
     Indication: DEPRESSION
  11. ALLEGRA [Concomitant]
     Indication: ASTHMA
     Dosage: DAILY
  12. FLONASE [Concomitant]
     Indication: HYPERSENSITIVITY

REACTIONS (1)
  - Nausea [Recovered/Resolved]
